FAERS Safety Report 25104796 (Version 3)
Quarter: 2025Q2

REPORT INFORMATION
  Report Type: Spontaneous
  Country: US (occurrence: US)
  Receive Date: 20250321
  Receipt Date: 20250403
  Transmission Date: 20250716
  Serious: Yes (Life-Threatening, Other)
  Sender: PFIZER
  Company Number: US-PFIZER INC-PV202500033831

PATIENT
  Age: 66 Year
  Sex: Female

DRUGS (6)
  1. SULFAMETHOXAZOLE\TRIMETHOPRIM [Suspect]
     Active Substance: SULFAMETHOXAZOLE\TRIMETHOPRIM
     Indication: Medical device site cellulitis
  2. METOPROLOL SUCCINATE [Concomitant]
     Active Substance: METOPROLOL SUCCINATE
     Indication: Atrial fibrillation
  3. METOPROLOL SUCCINATE [Concomitant]
     Active Substance: METOPROLOL SUCCINATE
     Indication: Sinus node dysfunction
  4. SPIRONOLACTONE [Concomitant]
     Active Substance: SPIRONOLACTONE
     Indication: Heart failure with preserved ejection fraction
  5. FUROSEMIDE [Concomitant]
     Active Substance: FUROSEMIDE
     Indication: Heart failure with preserved ejection fraction
  6. POTASSIUM CHLORIDE [Concomitant]
     Active Substance: POTASSIUM CHLORIDE
     Indication: Heart failure with preserved ejection fraction

REACTIONS (2)
  - BRASH syndrome [Recovering/Resolving]
  - Off label use [Unknown]
